FAERS Safety Report 21949374 (Version 1)
Quarter: 2023Q1

REPORT INFORMATION
  Report Type: Report from Study
  Country: US (occurrence: US)
  Receive Date: 20230203
  Receipt Date: 20230203
  Transmission Date: 20230418
  Serious: Yes (Other)
  Sender: FDA-Public Use
  Company Number: US-ABBVIE-4292870

PATIENT
  Age: 74 Year
  Sex: Male

DRUGS (1)
  1. SKYRIZI [Suspect]
     Active Substance: RISANKIZUMAB-RZAA
     Indication: Psoriasis
     Route: 058
     Dates: start: 20200911

REACTIONS (3)
  - Cerebrovascular accident [Recovering/Resolving]
  - Malaise [Recovering/Resolving]
  - Rehabilitation therapy [Unknown]

NARRATIVE: CASE EVENT DATE: 20221226
